FAERS Safety Report 6677414-2 (Version None)
Quarter: 2010Q2

REPORT INFORMATION
  Report Type: 
  Country: None (occurrence: None)
  Receive Date: 20100412
  Receipt Date: 20100115
  Transmission Date: 20101027
  Serious: Yes (Other)
  Sender: FDA-Public Use
  Company Number: AR-ALEXION-A201000091

PATIENT

DRUGS (3)
  1. SOLIRIS [Suspect]
     Indication: PAROXYSMAL NOCTURNAL HAEMOGLOBINURIA
     Dosage: 600 MG, QW
     Route: 042
     Dates: start: 20090622
  2. SOLIRIS [Suspect]
     Dosage: MAINTENANCE THERAPY
  3. CORTICOSTEROIDS [Concomitant]

REACTIONS (1)
  - HEPATITIS [None]
